FAERS Safety Report 4698020-5 (Version None)
Quarter: 2005Q2

REPORT INFORMATION
  Report Type: 
  Country: None (occurrence: None)
  Receive Date: 20050620
  Receipt Date: 20050613
  Transmission Date: 20051028
  Serious: Yes (Hospitalization)
  Sender: FDA-Public Use
  Company Number: THQ2005A00479

PATIENT
  Age: 73 Year

DRUGS (8)
  1. LEUPROLIDE ACETATE [Suspect]
     Dosage: 22.5 MG (22.5 MG 1 IN 3 M) INTRAMUSCULAR
     Route: 030
     Dates: start: 20031202, end: 20040224
  2. COLOXYL WITH SENNA (TABLETS) [Concomitant]
  3. SIMVASTATIN [Concomitant]
  4. METFORMIN [Concomitant]
  5. GLICLAZIDE [Concomitant]
  6. RAMIPRIL [Concomitant]
  7. ISOSORBIDE MONONITRATE [Concomitant]
  8. ASPIRIN/DIPYRIDAMOLE (ASASANTIN) [Concomitant]

REACTIONS (9)
  - AORTIC ATHEROSCLEROSIS [None]
  - BACK PAIN [None]
  - DIASTOLIC DYSFUNCTION [None]
  - DILATATION ATRIAL [None]
  - DYSPNOEA [None]
  - GLYCOSYLATED HAEMOGLOBIN INCREASED [None]
  - INTERVERTEBRAL DISC DEGENERATION [None]
  - MITRAL VALVE STENOSIS [None]
  - VENTRICULAR HYPERTROPHY [None]
